FAERS Safety Report 6434693-4 (Version None)
Quarter: 2009Q4

REPORT INFORMATION
  Report Type: 
  Country: None (occurrence: None)
  Receive Date: 20091109
  Receipt Date: 20091109
  Transmission Date: 20100525
  Serious: Yes (Other)
  Sender: FDA-Public Use
  Company Number: None

PATIENT
  Age: 8 Year
  Sex: Male
  Weight: 29.9374 kg

DRUGS (2)
  1. ADDERALL 12.5 [Suspect]
     Indication: ATTENTION DEFICIT/HYPERACTIVITY DISORDER
     Dosage: 20MG ONCE DAILY PO
     Route: 048
     Dates: start: 20080907, end: 20081007
  2. ADDERALL 12.5 [Suspect]
     Indication: ATTENTION DEFICIT/HYPERACTIVITY DISORDER
     Dosage: 30MG ONCE DAILY PO
     Route: 048
     Dates: start: 20081007, end: 20090213

REACTIONS (9)
  - ABNORMAL BEHAVIOUR [None]
  - DECREASED ACTIVITY [None]
  - DEPRESSED MOOD [None]
  - FLAT AFFECT [None]
  - INSOMNIA [None]
  - IRRITABILITY [None]
  - SOMNOLENCE [None]
  - WEIGHT DECREASED [None]
  - WITHDRAWAL SYNDROME [None]
